FAERS Safety Report 26051333 (Version 2)
Quarter: 2025Q4

REPORT INFORMATION
  Report Type: Spontaneous
  Country: US (occurrence: US)
  Receive Date: 20251117
  Receipt Date: 20251119
  Transmission Date: 20260117
  Serious: No
  Sender: TOLMAR
  Company Number: US-Tolmar-TLM-2025-08420

PATIENT
  Age: 38 Year
  Sex: Female
  Weight: 109.76 kg

DRUGS (2)
  1. ELIGARD [Suspect]
     Active Substance: LEUPROLIDE ACETATE
     Indication: Breast cancer
     Dosage: LOT NUMBER 15525CUS, EXPIRATION DATE 10-2026, SERIAL NUMBER 3504506029521, NDC?NUMBER 6293575680, GT
  2. DEVICE [Suspect]
     Active Substance: DEVICE
     Indication: Breast cancer
     Dosage: LOT NUMBER 15525CUS, EXPIRATION DATE 10-2026, SERIAL NUMBER 3504506029521, NDC?NUMBER 6293575680, GT

REACTIONS (3)
  - Intercepted product preparation error [Unknown]
  - Off label use [Not Recovered/Not Resolved]
  - Device leakage [Unknown]
